FAERS Safety Report 16593914 (Version 1)
Quarter: 2019Q3

REPORT INFORMATION
  Report Type: Other
  Country: US (occurrence: US)
  Receive Date: 20190718
  Receipt Date: 20190718
  Transmission Date: 20191004
  Serious: No
  Sender: FDA-Public Use
  Company Number: US-SWEDISH ORPHAN BIOVITRUM-2018US1568

PATIENT
  Age: 68 Year
  Sex: Female

DRUGS (12)
  1. METFORMIN [Concomitant]
     Active Substance: METFORMIN HYDROCHLORIDE
  2. TRAMADOL. [Concomitant]
     Active Substance: TRAMADOL
  3. SINGULAIR [Concomitant]
     Active Substance: MONTELUKAST SODIUM
  4. NASAL SPRAY [Concomitant]
     Active Substance: UNSPECIFIED INGREDIENT
  5. ALBUTEROL. [Concomitant]
     Active Substance: ALBUTEROL
  6. KINERET [Suspect]
     Active Substance: ANAKINRA
     Route: 058
     Dates: start: 20181214
  7. FLEXERIL [Concomitant]
     Active Substance: CYCLOBENZAPRINE HYDROCHLORIDE
  8. DOXEPIN [Concomitant]
     Active Substance: DOXEPIN
  9. MELOXICAM. [Concomitant]
     Active Substance: MELOXICAM
  10. NOVOLIN [Concomitant]
     Active Substance: INSULIN HUMAN
  11. PREDNISONE. [Concomitant]
     Active Substance: PREDNISONE
  12. OMEPRAZOLE. [Concomitant]
     Active Substance: OMEPRAZOLE

REACTIONS (2)
  - Nausea [Unknown]
  - Upper-airway cough syndrome [Unknown]

NARRATIVE: CASE EVENT DATE: 20181214
